FAERS Safety Report 4701370-7 (Version None)
Quarter: 2005Q2

REPORT INFORMATION
  Report Type: 
  Country: None (occurrence: None)
  Receive Date: 20050627
  Receipt Date: 20050613
  Transmission Date: 20051028
  Serious: Yes (Hospitalization)
  Sender: FDA-Public Use
  Company Number: 2005JP001203

PATIENT
  Age: 77 Year
  Sex: Male

DRUGS (9)
  1. FUNGUARD (MICAFUNGIN) INJECTION [Suspect]
     Indication: CANDIDA SEPSIS
     Dosage: 75.00 MG,  UID/QD, IV DRIP
     Route: 041
     Dates: start: 20050524, end: 20050603
  2. CIPROXAN (CIPROFLOXACIN HYDROCHLORIDE) INJECTION [Concomitant]
  3. ESRON (SODIUM LACTATE, PTASSIUM CHLORIDE, CALCIUM CHLORIDE ANHYDROUS, [Concomitant]
  4. FULCALIQ (MIXED AMINO ACID/CARBOHYDRATE/ELECTROLYTE/VITAMIN) INJECTION [Concomitant]
  5. BUMINATE (ALBUMIN HUMAN) [Concomitant]
  6. TAIGASTRON (CIMETIDINE) [Concomitant]
  7. PANANCOCIN-S INJECTION [Concomitant]
  8. MAXIPIME [Concomitant]
  9. FULUVAMIDE (FUROSEMIDE) INJECTION [Concomitant]

REACTIONS (1)
  - EOSINOPHIL COUNT INCREASED [None]
